FAERS Safety Report 15570678 (Version 1)
Quarter: 2018Q4

REPORT INFORMATION
  Report Type: Spontaneous
  Country: US (occurrence: US)
  Receive Date: 20181031
  Receipt Date: 20181031
  Transmission Date: 20190205
  Serious: Yes (Other)
  Sender: FDA-Public Use
  Company Number: PHHY2018US139460

PATIENT
  Age: 4 Month
  Sex: Female

DRUGS (1)
  1. CLINDAMYCIN. [Suspect]
     Active Substance: CLINDAMYCIN
     Indication: PAROTITIS
     Dosage: UNK
     Route: 042

REACTIONS (4)
  - Staphylococcal infection [Recovering/Resolving]
  - Abscess jaw [Unknown]
  - Septic shock [Unknown]
  - Septic embolus [Unknown]
